FAERS Safety Report 10042105 (Version 1)
Quarter: 2014Q1

REPORT INFORMATION
  Report Type: Spontaneous
  Country: BR (occurrence: BR)
  Receive Date: 20140327
  Receipt Date: 20140327
  Transmission Date: 20141002
  Serious: Yes (Other)
  Sender: FDA-Public Use
  Company Number: BR-PFIZER INC-2014085540

PATIENT
  Age: 58 Year
  Sex: Female
  Weight: 94 kg

DRUGS (4)
  1. FRONTAL [Suspect]
     Indication: DEPRESSION
     Dosage: 1 MG, 3X/DAY
     Route: 048
     Dates: start: 2007
  2. FRONTAL [Suspect]
     Indication: ANXIETY
  3. EFEXOR XR [Suspect]
     Indication: DEPRESSION
     Dosage: 225 MG (THREE ^TABLETS^ OF 75MG), 1X/DAY
     Route: 048
     Dates: start: 2012
  4. EFEXOR XR [Suspect]
     Indication: ANXIETY

REACTIONS (4)
  - Breast cancer [Recovering/Resolving]
  - Fall [Unknown]
  - Upper limb fracture [Unknown]
  - Joint injury [Unknown]
